FAERS Safety Report 8046053-3 (Version None)
Quarter: 2012Q1

REPORT INFORMATION
  Report Type: 
  Country: None (occurrence: None)
  Receive Date: 20120113
  Receipt Date: 20120111
  Transmission Date: 20120608
  Serious: Yes (Death)
  Sender: FDA-Public Use
  Company Number: US-BAYER-2012-003750

PATIENT
  Age: 55 Year
  Sex: Female

DRUGS (1)
  1. NEXAVAR [Suspect]
     Dosage: 400 MG, BID
     Route: 048
     Dates: start: 20111101, end: 20111213

REACTIONS (1)
  - DISEASE PROGRESSION [None]
